FAERS Safety Report 23931543 (Version 1)
Quarter: 2024Q2

REPORT INFORMATION
  Report Type: Spontaneous
  Country: ES (occurrence: ES)
  Receive Date: 20240603
  Receipt Date: 20240603
  Transmission Date: 20240716
  Serious: Yes (Hospitalization)
  Sender: FDA-Public Use
  Company Number: ES-CHEPLA-2024006835

PATIENT
  Age: 56 Year
  Sex: Male

DRUGS (6)
  1. CLONAZEPAM [Suspect]
     Active Substance: CLONAZEPAM
     Indication: Schizophrenia
  2. QUETIAPINE [Suspect]
     Active Substance: QUETIAPINE
     Indication: Schizophrenia
  3. CLOMIPRAMINE [Suspect]
     Active Substance: CLOMIPRAMINE
     Indication: Schizophrenia
  4. HALOPERIDOL [Suspect]
     Active Substance: HALOPERIDOL
     Indication: Schizophrenia
  5. CLOTHIAPINE [Suspect]
     Active Substance: CLOTHIAPINE
     Indication: Schizophrenia
  6. FLUPHENAZINE [Suspect]
     Active Substance: FLUPHENAZINE
     Indication: Schizophrenia

REACTIONS (4)
  - Hyponatraemia [Recovering/Resolving]
  - Polydipsia [Recovering/Resolving]
  - Off label use [Unknown]
  - Drug ineffective [Unknown]
